FAERS Safety Report 6015157-9 (Version None)
Quarter: 2008Q4

REPORT INFORMATION
  Report Type: 
  Country: None (occurrence: None)
  Receive Date: 20081219
  Receipt Date: 20081219
  Transmission Date: 20090506
  Serious: No
  Sender: FDA-Public Use
  Company Number: None

PATIENT
  Sex: Female
  Weight: 61.2356 kg

DRUGS (3)
  1. ZICAM ALLERGY RELIEF GEL SWABS 20 MEDICATED SWABS MATRIXX INITIATIVES [Suspect]
     Indication: MULTIPLE ALLERGIES
     Dosage: ONE SWAB FOR BOTH NASAL OPENIN EVERY 4 HOURS NASAL
     Route: 045
     Dates: start: 20081218, end: 20081218
  2. ZICAM ALLERGY RELIEF GEL SWABS 20 MEDICATED SWABS MATRIXX INITIATIVES [Suspect]
     Indication: NASOPHARYNGITIS
     Dosage: ONE SWAB FOR BOTH NASAL OPENIN EVERY 4 HOURS NASAL
     Route: 045
     Dates: start: 20081218, end: 20081218
  3. ZICAM ALLERGY RELIEF GEL SWABS 20 MEDICATED SWABS MATRIXX INITIATIVES [Suspect]
     Indication: SINUS DISORDER
     Dosage: ONE SWAB FOR BOTH NASAL OPENIN EVERY 4 HOURS NASAL
     Route: 045
     Dates: start: 20081218, end: 20081218

REACTIONS (2)
  - NASAL DISCOMFORT [None]
  - PAIN [None]
